FAERS Safety Report 12206566 (Version 1)
Quarter: 2016Q1

REPORT INFORMATION
  Report Type: Spontaneous
  Country: US (occurrence: None)
  Receive Date: 20160323
  Receipt Date: 20160323
  Transmission Date: 20160526
  Serious: Yes (Life-Threatening)
  Sender: FDA-Public Use
  Company Number: None

PATIENT
  Age: 62 Year
  Sex: Female
  Weight: 61.24 kg

DRUGS (5)
  1. SYNTHROID [Concomitant]
     Active Substance: LEVOTHYROXINE SODIUM
  2. LOVASTATIN. [Concomitant]
     Active Substance: LOVASTATIN
  3. LEXAPRO [Concomitant]
     Active Substance: ESCITALOPRAM OXALATE
  4. LEVAQUIN [Suspect]
     Active Substance: LEVOFLOXACIN
     Indication: PNEUMONIA
     Dosage: 6031603-07 ONCE DAILY TAKEN BY MOUTH
     Route: 048
     Dates: start: 20160316, end: 20160318
  5. ONE A DAY 50 PLUS VITAMINS [Concomitant]

REACTIONS (19)
  - Back pain [None]
  - Candida infection [None]
  - Otitis media [None]
  - Fatigue [None]
  - Hot flush [None]
  - Influenza like illness [None]
  - Pain in extremity [None]
  - Flushing [None]
  - Ear disorder [None]
  - Feeling of body temperature change [None]
  - Chest pain [None]
  - Condition aggravated [None]
  - Fungal infection [None]
  - Uterine haemorrhage [None]
  - Face oedema [None]
  - Ear pain [None]
  - Ascites [None]
  - Abdominal distension [None]
  - Pain [None]

NARRATIVE: CASE EVENT DATE: 20160318
